FAERS Safety Report 9881901 (Version 2)
Quarter: 2014Q1

REPORT INFORMATION
  Report Type: Report from Study
  Country: US (occurrence: US)
  Receive Date: 20140207
  Receipt Date: 20140211
  Transmission Date: 20141002
  Serious: Yes (Death)
  Sender: FDA-Public Use
  Company Number: PHEH2014US002633

PATIENT
  Sex: Female

DRUGS (5)
  1. AFINITOR [Suspect]
     Indication: BREAST CANCER METASTATIC
     Dosage: 10 MG, QD
     Route: 048
     Dates: start: 20140110
  2. AROMASIN [Concomitant]
     Dosage: 25 MG, PER DAY
     Route: 048
     Dates: end: 20140102
  3. NORCO [Concomitant]
     Dosage: UNK UNK, PRN
     Route: 048
  4. NEURONTIN [Concomitant]
     Dosage: 300 MG, PER DAY
     Route: 048
     Dates: start: 201310
  5. PRILOSEC [Concomitant]
     Dosage: 20 MG, BID
     Route: 048

REACTIONS (1)
  - Hepatic failure [Fatal]
